FAERS Safety Report 23580451 (Version 1)
Quarter: 2024Q1

REPORT INFORMATION
  Report Type: Spontaneous
  Country: US (occurrence: US)
  Receive Date: 20240229
  Receipt Date: 20240229
  Transmission Date: 20240409
  Serious: No
  Sender: FDA-Public Use
  Company Number: US-TAIHOP-2024-001765

PATIENT
  Sex: Male

DRUGS (1)
  1. LONSURF [Suspect]
     Active Substance: TIPIRACIL HYDROCHLORIDE\TRIFLURIDINE
     Indication: Colon cancer metastatic
     Dosage: FORM STRENGTH 20MG, 15MG?CYCLE UNKNOWN
     Route: 048
     Dates: start: 20240219

REACTIONS (1)
  - Product storage error [Unknown]
